FAERS Safety Report 22222374 (Version 2)
Quarter: 2023Q2

REPORT INFORMATION
  Report Type: Spontaneous
  Country: US (occurrence: US)
  Receive Date: 20230418
  Receipt Date: 20230526
  Transmission Date: 20230722
  Serious: Yes (Other)
  Sender: FDA-Public Use
  Company Number: US-JNJFOC-20230431774

PATIENT
  Sex: Male

DRUGS (6)
  1. ZYTIGA [Suspect]
     Active Substance: ABIRATERONE ACETATE
     Indication: Prostate cancer
     Route: 048
     Dates: start: 20221012, end: 20230329
  2. ZYTIGA [Suspect]
     Active Substance: ABIRATERONE ACETATE
     Route: 048
  3. PREDNISONE [Concomitant]
     Active Substance: PREDNISONE
     Route: 065
  4. TURKEY TAIL [Concomitant]
     Indication: Neoplasm malignant
     Route: 065
     Dates: start: 202102
  5. REISHI [GANODERMA LUCIDUM] [Concomitant]
     Indication: Neoplasm malignant
     Route: 065
     Dates: start: 202102
  6. VITAMINS NOS [Concomitant]
     Active Substance: VITAMINS
     Route: 065

REACTIONS (9)
  - Myocardial infarction [Unknown]
  - Hypertension [Unknown]
  - Migraine [Unknown]
  - Contusion [Unknown]
  - Blood potassium decreased [Unknown]
  - Blood magnesium decreased [Unknown]
  - Mood swings [Unknown]
  - Amnesia [Unknown]
  - Off label use [Unknown]
